FAERS Safety Report 10225559 (Version 2)
Quarter: 2014Q2

REPORT INFORMATION
  Report Type: Spontaneous
  Country: US (occurrence: US)
  Receive Date: 20140609
  Receipt Date: 20140627
  Transmission Date: 20141212
  Serious: Yes (Hospitalization, Other)
  Sender: FDA-Public Use
  Company Number: US-GILEAD-2014-0104609

PATIENT
  Sex: Female

DRUGS (2)
  1. LETAIRIS [Suspect]
     Indication: PRODUCT USED FOR UNKNOWN INDICATION
     Dosage: 5 MG, QD
     Dates: start: 20130227
  2. VENTAVIS [Concomitant]
     Dosage: 4 DF, QD
     Route: 065

REACTIONS (3)
  - Diabetes mellitus [Unknown]
  - Headache [Unknown]
  - Malaise [Unknown]
